FAERS Safety Report 9791396 (Version 1)
Quarter: 2014Q1

REPORT INFORMATION
  Report Type: Report from Study
  Country: TW (occurrence: TW)
  Receive Date: 20140101
  Receipt Date: 20140101
  Transmission Date: 20141002
  Serious: No
  Sender: FDA-Public Use
  Company Number: PHHY2013TW150960

PATIENT
  Age: 58 Year
  Sex: Female

DRUGS (16)
  1. AMN107 [Suspect]
     Dosage: 600 MG, UNK
     Dates: start: 20111126, end: 20130422
  2. AMN107 [Suspect]
     Dosage: 200 MG, UNK
     Dates: start: 20130422, end: 20130422
  3. AMN107 [Suspect]
     Dosage: 400 MG, UNK
     Dates: start: 20130425, end: 20130425
  4. AMN107 [Suspect]
     Dosage: 600 MG, UNK
     Dates: start: 20130426, end: 20131119
  5. BETAMETHASONE [Concomitant]
     Indication: FOLLICULITIS
     Dates: start: 20120328, end: 20120731
  6. ASPIRIN [Concomitant]
     Indication: BASAL GANGLIA INFARCTION
     Dates: start: 20130420
  7. BENZOYL PEROXIDE [Concomitant]
     Indication: FOLLICULITIS
     Dates: start: 20120801
  8. CLOBETASOL PROPIONATE [Concomitant]
     Indication: FOLLICULITIS
     Dates: start: 20120801
  9. DESMOPRESSIN [Concomitant]
     Indication: NEOPLASM PROSTATE
     Dates: start: 20130314
  10. DOXYCYCLINE [Concomitant]
     Indication: TENDERNESS
     Dates: start: 20120801
  11. DOXYCYCLINE [Concomitant]
     Indication: RASH PUSTULAR
  12. FLUVASTATIN [Concomitant]
     Indication: HYPERCHOLESTEROLAEMIA
     Dates: start: 20130627
  13. GENTAMCIN [Concomitant]
     Indication: FOLLICULITIS
     Dates: start: 20120328, end: 20120731
  14. PASCA [Concomitant]
     Indication: TENDERNESS
     Dates: start: 20120328, end: 20120731
  15. PASCA [Concomitant]
     Indication: RASH PUSTULAR
  16. POLYTAR LIQUID [Concomitant]
     Indication: FOLLICULITIS
     Dates: start: 20120328, end: 20120731

REACTIONS (1)
  - Chest pain [Unknown]
